FAERS Safety Report 18057372 (Version 2)
Quarter: 2020Q4

REPORT INFORMATION
  Report Type: Spontaneous
  Country: TH (occurrence: TH)
  Receive Date: 20200722
  Receipt Date: 20201204
  Transmission Date: 20210113
  Serious: Yes (Other)
  Sender: FDA-Public Use
  Company Number: NVSC2020TH203770

PATIENT
  Age: 69 Year
  Sex: Female

DRUGS (5)
  1. MEKINIST [Suspect]
     Active Substance: TRAMETINIB DIMETHYL SULFOXIDE
     Indication: MALIGNANT MELANOMA STAGE IV
     Dosage: 2 MG, QD
     Route: 065
     Dates: start: 20180605
  2. NIVOLUMAB [Suspect]
     Active Substance: NIVOLUMAB
     Dosage: 1 DF (4 DOSES), Q3W
     Route: 065
     Dates: start: 20200526
  3. TAFINLAR [Suspect]
     Active Substance: DABRAFENIB MESYLATE
     Indication: MALIGNANT MELANOMA STAGE IV
     Dosage: 150 MG, QD
     Route: 065
     Dates: start: 20180605
  4. NIVOLUMAB [Suspect]
     Active Substance: NIVOLUMAB
     Indication: MALIGNANT MELANOMA STAGE IV
     Dosage: 1 DF (4 DOSES), Q3W
     Route: 065
     Dates: start: 20200303, end: 20200505
  5. IPILIMUMAB [Suspect]
     Active Substance: IPILIMUMAB
     Indication: MALIGNANT MELANOMA STAGE IV
     Dosage: UNK
     Route: 065
     Dates: start: 20200303, end: 20200505

REACTIONS (16)
  - Weight increased [Unknown]
  - Femur fracture [Unknown]
  - Pyrexia [Recovered/Resolved]
  - Pneumonitis [Unknown]
  - Pruritus [Unknown]
  - Metastases to lung [Unknown]
  - Blood lactate dehydrogenase increased [Unknown]
  - Malignant melanoma stage IV [Unknown]
  - Nausea [Recovered/Resolved]
  - Chills [Recovered/Resolved]
  - Fatigue [Unknown]
  - Malignant neoplasm progression [Unknown]
  - Metastases to thyroid [Unknown]
  - Hypothyroidism [Unknown]
  - Rash [Unknown]
  - Pain [Unknown]

NARRATIVE: CASE EVENT DATE: 201807
